FAERS Safety Report 12557214 (Version 2)
Quarter: 2016Q3

REPORT INFORMATION
  Report Type: Spontaneous
  Country: FR (occurrence: FR)
  Receive Date: 20160714
  Receipt Date: 20160725
  Transmission Date: 20161109
  Serious: Yes (Hospitalization)
  Sender: FDA-Public Use
  Company Number: FR-BAYER-2016-131156

PATIENT
  Age: 22 Year
  Sex: Female

DRUGS (4)
  1. BACTRIM [Suspect]
     Active Substance: SULFAMETHOXAZOLE\TRIMETHOPRIM
     Indication: PYELONEPHRITIS ACUTE
     Dosage: 2 DF, BID
     Route: 048
     Dates: start: 20160522, end: 20160601
  2. CIFLOX [Suspect]
     Active Substance: CIPROFLOXACIN
     Indication: URINARY TRACT INFECTION
     Dosage: UNK
     Route: 048
     Dates: start: 20160519, end: 20160520
  3. ROCEPHINE [Suspect]
     Active Substance: CEFTRIAXONE SODIUM
     Indication: PYELONEPHRITIS ACUTE
     Dosage: UNK
     Route: 042
     Dates: start: 20160520, end: 20160522
  4. AMINOGRAN FOOD SUPPLEMENT [Suspect]
     Active Substance: AMINO ACIDS
     Dosage: UNK
     Route: 048
     Dates: start: 201605

REACTIONS (5)
  - Oedema peripheral [Recovering/Resolving]
  - Urticaria [Recovering/Resolving]
  - Generalised erythema [Recovering/Resolving]
  - Eosinophil count increased [Recovering/Resolving]
  - Pruritus [Recovering/Resolving]

NARRATIVE: CASE EVENT DATE: 20160519
